FAERS Safety Report 8225108-4 (Version None)
Quarter: 2012Q1

REPORT INFORMATION
  Report Type: 
  Country: None (occurrence: None)
  Receive Date: 20120321
  Receipt Date: 20120312
  Transmission Date: 20120608
  Serious: Yes (Other)
  Sender: FDA-Public Use
  Company Number: US-JNJFOC-20120306529

PATIENT
  Sex: Female

DRUGS (7)
  1. DICYCLOMINE [Concomitant]
     Route: 065
  2. ALENDRONATE SODIUM [Concomitant]
     Route: 065
  3. SIMVASTATIN [Concomitant]
     Route: 065
  4. REMICADE [Suspect]
     Indication: RHEUMATOID ARTHRITIS
     Route: 042
  5. VITAMIN B COMPLEX CAP [Concomitant]
     Route: 065
  6. LAMICTAL [Concomitant]
     Route: 065
  7. GABAPENTIN [Concomitant]
     Route: 065

REACTIONS (2)
  - AMNESIA [None]
  - HALLUCINATION [None]
